FAERS Safety Report 7289379-3 (Version None)
Quarter: 2011Q1

REPORT INFORMATION
  Report Type: 
  Country: None (occurrence: None)
  Receive Date: 20110211
  Receipt Date: 20100412
  Transmission Date: 20110831
  Serious: Yes (Hospitalization, Other)
  Sender: FDA-Public Use
  Company Number: PHHY2010IN90627

PATIENT
  Age: 50 Year
  Sex: Female

DRUGS (8)
  1. MYCOPHENOLATE MOFETIL [Concomitant]
     Dosage: 1MG FROM DAY 1
  2. SOLU-MEDROL [Concomitant]
     Dosage: 500 MG, UNK
     Route: 042
  3. SOLU-MEDROL [Concomitant]
     Dosage: 125 MG, UNK
     Route: 042
  4. TACROLIMUS [Concomitant]
     Dosage: 0.1MG/KG
  5. IMMUNGLOBULIN [Concomitant]
     Dosage: 2GM/KG
  6. RITUXIMAB [Concomitant]
     Dosage: 375MG/MSQ WAS GIVEN IN SINGLE DOSE
  7. SOLU-MEDROL [Concomitant]
     Dosage: 250 MG, UNK
     Route: 042
  8. SIMULECT [Suspect]
     Indication: RENAL TRANSPLANT
     Dosage: 20 MG, UNK
     Dates: start: 20090930

REACTIONS (10)
  - ORAL FUNGAL INFECTION [None]
  - CYTOMEGALOVIRUS INFECTION [None]
  - RENAL IMPAIRMENT [None]
  - NEPHROPATHY TOXIC [None]
  - PNEUMOCYSTIS JIROVECI PNEUMONIA [None]
  - URINARY TRACT INFECTION [None]
  - FUNGAL INFECTION [None]
  - KIDNEY TRANSPLANT REJECTION [None]
  - LOWER RESPIRATORY TRACT INFECTION [None]
  - THROMBOCYTOPENIA [None]
